FAERS Safety Report 13093310 (Version 2)
Quarter: 2017Q1

REPORT INFORMATION
  Report Type: Spontaneous
  Country: US (occurrence: US)
  Receive Date: 20170106
  Receipt Date: 20170203
  Transmission Date: 20170428
  Serious: Yes (Other)
  Sender: FDA-Public Use
  Company Number: US-JNJFOC-20170103159

PATIENT
  Age: 71 Year
  Sex: Female
  Weight: 64 kg

DRUGS (10)
  1. METOPROLOL. [Concomitant]
     Active Substance: METOPROLOL
  2. PREVACID [Concomitant]
     Active Substance: LANSOPRAZOLE
  3. ASPIRIN. [Concomitant]
     Active Substance: ASPIRIN
  4. METAMUCIL [Concomitant]
     Active Substance: PLANTAGO SEED
  5. MIRALAX [Concomitant]
     Active Substance: POLYETHYLENE GLYCOL 3350
  6. IMBRUVICA [Suspect]
     Active Substance: IBRUTINIB
     Indication: PRODUCT USED FOR UNKNOWN INDICATION
     Route: 065
     Dates: start: 20160804
  7. MAGNESIUM [Concomitant]
     Active Substance: MAGNESIUM
  8. ATORVASTATIN [Concomitant]
     Active Substance: ATORVASTATIN
  9. IBUPROFEN. [Concomitant]
     Active Substance: IBUPROFEN
  10. LOSARTAN. [Concomitant]
     Active Substance: LOSARTAN

REACTIONS (1)
  - Arteriospasm coronary [Recovered/Resolved]

NARRATIVE: CASE EVENT DATE: 20161230
